FAERS Safety Report 4962291-8 (Version None)
Quarter: 2006Q2

REPORT INFORMATION
  Report Type: 
  Country: None (occurrence: None)
  Receive Date: 20060404
  Receipt Date: 20050720
  Transmission Date: 20061013
  Serious: No
  Sender: FDA-Public Use
  Company Number: US-BRISTOL-MYERS SQUIBB COMPANY-13046065

PATIENT
  Age: 17 Year
  Sex: Male

DRUGS (6)
  1. HYDREA [Suspect]
     Indication: SICKLE CELL ANAEMIA
     Route: 048
     Dates: start: 20040322
  2. PENICILLIN V [Concomitant]
  3. ASCORBIC ACID [Concomitant]
  4. DESFERAL [Concomitant]
     Route: 058
  5. TYLENOL (CAPLET) [Concomitant]
  6. BENADRYL [Concomitant]

REACTIONS (3)
  - NORMAL NEWBORN [None]
  - PREGNANCY [None]
  - TRANSMISSION OF DRUG VIA SEMEN [None]
